FAERS Safety Report 23344380 (Version 3)
Quarter: 2024Q1

REPORT INFORMATION
  Report Type: Spontaneous
  Country: US (occurrence: US)
  Receive Date: 20231228
  Receipt Date: 20240119
  Transmission Date: 20240410
  Serious: Yes (Other)
  Sender: FDA-Public Use
  Company Number: US-ABBVIE-5560653

PATIENT
  Age: 29 Year
  Sex: Male
  Weight: 116 kg

DRUGS (34)
  1. LINZESS [Suspect]
     Active Substance: LINACLOTIDE
     Indication: Constipation
     Dosage: STRENGTH: 72 MICROGRAM
     Route: 048
     Dates: start: 20231221, end: 20231221
  2. PHENERGAN [Concomitant]
     Active Substance: PROMETHAZINE HYDROCHLORIDE
     Indication: Product used for unknown indication
     Dosage: 25 MG EVERY FOUR HOURS
     Route: 065
  3. OMEGA 3 [Concomitant]
     Active Substance: CAPSAICIN
     Indication: Product used for unknown indication
     Dosage: (300 MG A.M.)
  4. 5-htp [Concomitant]
     Indication: Product used for unknown indication
     Dosage: (200 MG P.M.), 200 MG
     Route: 065
  5. LUBIPROSTONE [Concomitant]
     Active Substance: LUBIPROSTONE
     Indication: Product used for unknown indication
     Dosage: (8 MCG A.M. + 8 MCG P.M.)
  6. ADEMETIONINE [Concomitant]
     Active Substance: ADEMETIONINE
     Indication: Product used for unknown indication
     Dosage: (1,200 MG A.M.)
  7. CALCIUM [Concomitant]
     Active Substance: CALCIUM
     Indication: Product used for unknown indication
     Dosage: (500 MG A.M.),  500 MG
     Route: 065
  8. TRINTELLIX [Concomitant]
     Active Substance: VORTIOXETINE HYDROBROMIDE
     Indication: Product used for unknown indication
     Dosage: (20 MG A.M.)
  9. VITAMIN D [Concomitant]
     Active Substance: VITAMIN D NOS
     Indication: Product used for unknown indication
     Dosage: (8,000 IU A.M.)
  10. DOXEPIN [Concomitant]
     Active Substance: DOXEPIN
     Indication: Product used for unknown indication
     Dosage: (~5 MG P.M.)
  11. PROPRANOLOL [Concomitant]
     Active Substance: PROPRANOLOL HYDROCHLORIDE
     Indication: Product used for unknown indication
     Dosage: (10 MG A.M. AND TWO OTHER TIMES DURING THE DAY WHEN NEEDED)
     Route: 065
  12. METAMUCIL [Concomitant]
     Active Substance: PLANTAGO SEED
     Indication: Product used for unknown indication
     Dosage: 2 CAPSULES PER DAY (2 A.M.)
     Route: 065
  13. ALBUTEROL [Concomitant]
     Active Substance: ALBUTEROL
     Indication: Product used for unknown indication
     Dosage: MAY TAKE TWO PUFFS EVERY FOUR HOURS.?INHALER AS NEED
  14. MAGNESIUM [Concomitant]
     Active Substance: MAGNESIUM
     Indication: Product used for unknown indication
     Dosage: (100 MG P.M.)
     Route: 065
  15. PANTOPRAZOLE [Concomitant]
     Active Substance: PANTOPRAZOLE
     Indication: Product used for unknown indication
     Dosage: (40 MG A.M. + 40 MG P.M.)?80 MG
  16. HERBALS\WITHANIA SOMNIFERA ROOT [Concomitant]
     Active Substance: HERBALS\WITHANIA SOMNIFERA ROOT
     Indication: Product used for unknown indication
     Dosage: (400 MG A.M.), 400 MG
     Route: 065
  17. NORTRIPTYLINE [Concomitant]
     Active Substance: NORTRIPTYLINE
     Indication: Product used for unknown indication
     Dosage: (10 MG P.M.)
  18. LYRICA [Concomitant]
     Active Substance: PREGABALIN
     Indication: Product used for unknown indication
     Dosage: (200 MG P.M.)
     Route: 065
  19. AMERICAN GINSENG [Concomitant]
     Active Substance: AMERICAN GINSENG
     Indication: Product used for unknown indication
     Dosage: (1000 MG A.M.)
  20. URSODIOL [Concomitant]
     Active Substance: URSODIOL
     Indication: Product used for unknown indication
     Dosage: (500 MG A.M. + 500 MG P.M.)
     Route: 065
  21. Systane original [Concomitant]
     Indication: Product used for unknown indication
     Dosage: PF EYE DROPS
  22. FLOMAX [Concomitant]
     Active Substance: TAMSULOSIN HYDROCHLORIDE
     Indication: Product used for unknown indication
     Dosage: (0.4 MG A.M.)
     Route: 065
  23. SODIUM CHLORIDE [Concomitant]
     Active Substance: SODIUM CHLORIDE
     Indication: Product used for unknown indication
     Dosage: 1 G EVERY TWO HOURS FIVE TIMES PER DAY.
  24. TRELEGY ELLIPTA [Concomitant]
     Active Substance: FLUTICASONE FUROATE\UMECLIDINIUM BROMIDE\VILANTEROL TRIFENATATE
     Indication: Product used for unknown indication
     Dosage: (1 PUFF A.M.)
     Route: 065
  25. MEMANTINE [Concomitant]
     Active Substance: MEMANTINE
     Indication: Product used for unknown indication
     Dosage: (10 MG A.M. + 10 MG P.M.)
     Route: 065
  26. NALTREXONE [Concomitant]
     Active Substance: NALTREXONE
     Indication: Product used for unknown indication
     Dosage: (4.5 MG A.M.)
     Route: 065
  27. WELLBUTRIN SR [Concomitant]
     Active Substance: BUPROPION HYDROCHLORIDE
     Indication: Product used for unknown indication
     Dosage: (200 MG A.M.)
     Route: 065
  28. NITROGLYCERIN [Concomitant]
     Active Substance: NITROGLYCERIN
     Indication: Product used for unknown indication
     Dosage: (0.4 MG AS NEEDED)
     Route: 065
  29. ZOFRAN [Concomitant]
     Active Substance: ONDANSETRON HYDROCHLORIDE
     Indication: Product used for unknown indication
     Dosage: (4 MG 10 A.M. AND MAY ALSO TAKE LATER IN THE DAY IF NEEDED)
     Route: 065
  30. FAMOTIDINE [Concomitant]
     Active Substance: FAMOTIDINE
     Indication: Product used for unknown indication
     Dosage: (40 MG A.M. + 40 MG P.M.)
     Route: 065
  31. VITAMIN B12 [Concomitant]
     Active Substance: CYANOCOBALAMIN
     Indication: Product used for unknown indication
     Dosage: (1,000 MCG CAPSULE A.M.)
     Route: 065
  32. MYRBETRIQ [Concomitant]
     Active Substance: MIRABEGRON
     Indication: Product used for unknown indication
     Dosage: (50 MG A.M.)
     Route: 065
  33. Isosorbide Mononit [Concomitant]
     Indication: Product used for unknown indication
     Dosage: (60 MG A.M.)
     Route: 065
  34. VRAYLAR [Concomitant]
     Active Substance: CARIPRAZINE
     Indication: Product used for unknown indication
     Dosage: (1.5 MG P.M.)

REACTIONS (16)
  - Asthenia [Recovered/Resolved]
  - Hypersensitivity [Recovered/Resolved]
  - Throat tightness [Recovered/Resolved]
  - Disturbance in attention [Recovered/Resolved]
  - Chest pain [Recovered/Resolved]
  - Dyspnoea [Recovered/Resolved]
  - Snoring [Unknown]
  - Depression [Recovered/Resolved]
  - Arthralgia [Recovered/Resolved]
  - Brain fog [Recovered/Resolved]
  - Angiopathy [Recovered/Resolved]
  - Joint stiffness [Recovered/Resolved]
  - Fatigue [Recovered/Resolved]
  - Electrocardiogram abnormal [Recovered/Resolved]
  - Anxiety [Recovered/Resolved]
  - Post-acute COVID-19 syndrome [Unknown]

NARRATIVE: CASE EVENT DATE: 20231201
